FAERS Safety Report 17562106 (Version 2)
Quarter: 2020Q2

REPORT INFORMATION
  Report Type: Spontaneous
  Country: JP (occurrence: JP)
  Receive Date: 20200319
  Receipt Date: 20200407
  Transmission Date: 20200713
  Serious: Yes (Other)
  Sender: FDA-Public Use
  Company Number: NVSC2020JP078020

PATIENT
  Age: 84 Year
  Sex: Male

DRUGS (1)
  1. STARSIS [Suspect]
     Active Substance: NATEGLINIDE
     Indication: DIABETES MELLITUS
     Dosage: 180 MG
     Route: 048

REACTIONS (4)
  - Dementia [Unknown]
  - Memory impairment [Unknown]
  - Circumstance or information capable of leading to medication error [Unknown]
  - Dysphagia [Unknown]
